FAERS Safety Report 13152411 (Version 1)
Quarter: 2017Q1

REPORT INFORMATION
  Report Type: Report from Study
  Country: None (occurrence: NL)
  Receive Date: 20170125
  Receipt Date: 20170125
  Transmission Date: 20170428
  Serious: Yes (Other)
  Sender: FDA-Public Use
  Company Number: NL-ABBVIE-17P-114-1851239-00

PATIENT
  Sex: Male

DRUGS (4)
  1. SYNAGIS [Suspect]
     Active Substance: PALIVIZUMAB
     Route: 065
     Dates: start: 20161227, end: 20161227
  2. SYNAGIS [Suspect]
     Active Substance: PALIVIZUMAB
     Indication: ANTIVIRAL PROPHYLAXIS
     Route: 065
     Dates: start: 20161002, end: 20161002
  3. SYNAGIS [Suspect]
     Active Substance: PALIVIZUMAB
     Route: 065
     Dates: start: 20161130, end: 20161130
  4. SYNAGIS [Suspect]
     Active Substance: PALIVIZUMAB
     Route: 065
     Dates: start: 20161102, end: 20161102

REACTIONS (2)
  - Dyspnoea [Not Recovered/Not Resolved]
  - Pharyngeal stenosis [Not Recovered/Not Resolved]
